FAERS Safety Report 4472852-0 (Version None)
Quarter: 2004Q4

REPORT INFORMATION
  Report Type: 
  Country: None (occurrence: None)
  Receive Date: 20041002
  Receipt Date: 20041002
  Transmission Date: 20050328
  Serious: Yes (Life-Threatening, Hospitalization)
  Sender: FDA-Public Use
  Company Number: None

PATIENT
  Sex: Female
  Weight: 113.3993 kg

DRUGS (1)
  1. TRILYTE [Suspect]
     Indication: DIAGNOSTIC PROCEDURE
     Dosage: 64 OZ   ONE TIME   ORAL
     Route: 048
     Dates: start: 20040601, end: 20040601

REACTIONS (3)
  - HYPERSENSITIVITY [None]
  - MEDICATION ERROR [None]
  - PHARMACEUTICAL PRODUCT COMPLAINT [None]
